FAERS Safety Report 24830399 (Version 3)
Quarter: 2025Q2

REPORT INFORMATION
  Report Type: Report from Study
  Country: US (occurrence: US)
  Receive Date: 20250110
  Receipt Date: 20250411
  Transmission Date: 20250716
  Serious: Yes (Hospitalization, Other)
  Sender: MERCK SHARP AND DOHME
  Company Number: US-009507513-2501USA002015

PATIENT
  Sex: Female
  Weight: 58.957 kg

DRUGS (38)
  1. SOTATERCEPT [Suspect]
     Active Substance: SOTATERCEPT
     Indication: Pulmonary arterial hypertension
     Route: 058
     Dates: start: 2024
  2. SOTATERCEPT [Suspect]
     Active Substance: SOTATERCEPT
  3. SOTATERCEPT [Suspect]
     Active Substance: SOTATERCEPT
  4. SOTATERCEPT [Suspect]
     Active Substance: SOTATERCEPT
  5. TREPROSTINIL [Suspect]
     Active Substance: TREPROSTINIL
     Indication: Pulmonary arterial hypertension
     Route: 058
     Dates: start: 20210618
  6. ZYRTEC [Concomitant]
     Active Substance: CETIRIZINE HYDROCHLORIDE
  7. VITAMIN C [Concomitant]
     Active Substance: ASCORBIC ACID
  8. MIDODRINE HYDROCHLORIDE [Concomitant]
     Active Substance: MIDODRINE HYDROCHLORIDE
  9. FLUTICASONE PROPIONATE [Concomitant]
     Active Substance: FLUTICASONE PROPIONATE
  10. FUROSEMIDE [Concomitant]
     Active Substance: FUROSEMIDE
  11. PILOCARPINE HYDROCHLORIDE [Concomitant]
     Active Substance: PILOCARPINE HYDROCHLORIDE
  12. PRAVASTATIN [Concomitant]
     Active Substance: PRAVASTATIN
  13. PREDNISONE [Concomitant]
     Active Substance: PREDNISONE
  14. IRON [Concomitant]
     Active Substance: IRON
  15. OPSUMIT [Concomitant]
     Active Substance: MACITENTAN
  16. ADCIRCA [Concomitant]
     Active Substance: TADALAFIL
  17. TRAMADOL [Concomitant]
     Active Substance: TRAMADOL
  18. OXYGEN [Concomitant]
     Active Substance: OXYGEN
  19. MUCINEX [Concomitant]
     Active Substance: GUAIFENESIN
  20. MINERALS\VITAMINS [Concomitant]
     Active Substance: MINERALS\VITAMINS
  21. COENXYME Q10 [Concomitant]
  22. PREVACID [Concomitant]
     Active Substance: LANSOPRAZOLE
  23. ASPIRIN [Concomitant]
     Active Substance: ASPIRIN
  24. PEPPERMINT OIL [Concomitant]
     Active Substance: PEPPERMINT OIL
  25. TYLENOL [Concomitant]
     Active Substance: ACETAMINOPHEN
  26. SPIRONOLACTONE AND HYDROCHLOROTHIAZIDE [Concomitant]
     Active Substance: HYDROCHLOROTHIAZIDE\SPIRONOLACTONE
  27. CEFTRIAXONE [Concomitant]
     Active Substance: CEFTRIAXONE
  28. AMOXICILLIN [Concomitant]
     Active Substance: AMOXICILLIN
  29. VITAMIN D3 [Concomitant]
     Active Substance: CHOLECALCIFEROL
  30. PANTOPRAZOLE SODIUM [Concomitant]
     Active Substance: PANTOPRAZOLE SODIUM
  31. LAGEVRIO [Concomitant]
     Active Substance: MOLNUPIRAVIR
  32. ACCRUFER [Concomitant]
     Active Substance: FERRIC MALTOL
  33. NITROFURANTOIN MONOHYDRATE MACROCRYSTALS [Concomitant]
     Active Substance: NITROFURANTOIN\NITROFURANTOIN MONOHYDRATE
  34. SPIRONOLACTONE [Concomitant]
     Active Substance: SPIRONOLACTONE
  35. MONTELUKAST SODIUM [Concomitant]
     Active Substance: MONTELUKAST SODIUM
  36. METRONIDAZOLE [Concomitant]
     Active Substance: METRONIDAZOLE
  37. ONDANSETRON ODT, [Concomitant]
  38. METFORMIN HYDROCHLORIDE [Concomitant]
     Active Substance: METFORMIN HYDROCHLORIDE

REACTIONS (34)
  - Injection site erythema [Recovered/Resolved]
  - Carpal tunnel syndrome [Unknown]
  - Epistaxis [Unknown]
  - Fine motor skill dysfunction [Unknown]
  - Condition aggravated [Unknown]
  - Pulmonary arterial hypertension [Unknown]
  - Fungal infection [Unknown]
  - Hypersensitivity [Unknown]
  - Vaginal infection [Unknown]
  - Peripheral swelling [Unknown]
  - Eye inflammation [Unknown]
  - Cough [Unknown]
  - Weight decreased [Unknown]
  - Throat irritation [Unknown]
  - Ear pain [Unknown]
  - Sinusitis [Unknown]
  - Epistaxis [Unknown]
  - COVID-19 [Unknown]
  - Injection site haemorrhage [Unknown]
  - Respiratory tract infection [Unknown]
  - Pain [Unknown]
  - Injection site bruising [Unknown]
  - Headache [Unknown]
  - Diarrhoea [Unknown]
  - Fatigue [Unknown]
  - Abdominal discomfort [Unknown]
  - Injection site pain [Unknown]
  - Infusion related reaction [Unknown]
  - Hip fracture [Unknown]
  - Femur fracture [Unknown]
  - Incision site abscess [Unknown]
  - Peripheral swelling [Unknown]
  - Abscess limb [Unknown]
  - Hospitalisation [Unknown]

NARRATIVE: CASE EVENT DATE: 20240101
